FAERS Safety Report 16758333 (Version 2)
Quarter: 2019Q3

REPORT INFORMATION
  Report Type: Report from Study
  Country: CA (occurrence: CA)
  Receive Date: 20190830
  Receipt Date: 20190906
  Transmission Date: 20191005
  Serious: Yes (Other)
  Sender: FDA-Public Use
  Company Number: CA-ROCHE-2392946

PATIENT

DRUGS (2)
  1. MEPERIDINE [PETHIDINE] [Concomitant]
     Active Substance: MEPERIDINE
  2. DIAZEPAM. [Suspect]
     Active Substance: DIAZEPAM
     Indication: SEDATION
     Route: 042

REACTIONS (1)
  - Hypoxia [Unknown]
